FAERS Safety Report 22168506 (Version 3)
Quarter: 2023Q2

REPORT INFORMATION
  Report Type: Spontaneous
  Country: IN (occurrence: IN)
  Receive Date: 20230403
  Receipt Date: 20230508
  Transmission Date: 20230721
  Serious: Yes (Hospitalization, Other)
  Sender: FDA-Public Use
  Company Number: IN-PFIZER INC-202300140590

PATIENT
  Age: 57 Year
  Sex: Female

DRUGS (2)
  1. CARBOPLATIN [Suspect]
     Active Substance: CARBOPLATIN
     Indication: EGFR gene mutation
     Dosage: UNK
  2. PACLITAXEL [Suspect]
     Active Substance: PACLITAXEL
     Dosage: UNK

REACTIONS (12)
  - Neuropathy peripheral [Unknown]
  - Liver injury [Recovered/Resolved]
  - Neoplasm progression [Unknown]
  - Neck pain [Unknown]
  - Vomiting [Unknown]
  - Asthenia [Unknown]
  - Dyspnoea [Unknown]
  - Cough [Unknown]
  - Chest pain [Unknown]
  - Rash [Unknown]
  - Diarrhoea [Unknown]
  - Off label use [Unknown]
